FAERS Safety Report 4642984-2 (Version None)
Quarter: 2005Q2

REPORT INFORMATION
  Report Type: 
  Country: None (occurrence: None)
  Receive Date: 20050421
  Receipt Date: 20050411
  Transmission Date: 20051028
  Serious: Yes (Death, Hospitalization)
  Sender: FDA-Public Use
  Company Number: GBT050101873

PATIENT
  Age: 23 Year
  Sex: Male
  Weight: 109 kg

DRUGS (3)
  1. HUMATROPE [Suspect]
     Indication: GROWTH HORMONE DEFICIENCY
     Dosage: 0.3 MG
     Dates: start: 20011127
  2. SUSTANON [Concomitant]
  3. METFORMIN [Concomitant]

REACTIONS (17)
  - ACIDOSIS [None]
  - ADRENAL DISORDER [None]
  - CEREBRAL CYST [None]
  - COAGULOPATHY [None]
  - GASTROINTESTINAL NECROSIS [None]
  - HEPATIC STEATOSIS [None]
  - HYPOXIA [None]
  - MULTI-ORGAN FAILURE [None]
  - PANCREATIC NECROSIS [None]
  - PANCREATITIS ACUTE [None]
  - PANCREATITIS HAEMORRHAGIC [None]
  - PLEURAL EFFUSION [None]
  - PULMONARY OEDEMA [None]
  - RENAL HAEMORRHAGE [None]
  - SHOCK [None]
  - SPLENOMEGALY [None]
  - URINARY BLADDER HAEMORRHAGE [None]
